FAERS Safety Report 9935782 (Version 1)
Quarter: 2014Q1

REPORT INFORMATION
  Report Type: Spontaneous
  Country: US (occurrence: US)
  Receive Date: 20140228
  Receipt Date: 20140228
  Transmission Date: 20141002
  Serious: No
  Sender: FDA-Public Use
  Company Number: US-AMGEN-USASP2013068897

PATIENT
  Age: 61 Year
  Sex: Female
  Weight: 85.71 kg

DRUGS (13)
  1. ENBREL [Suspect]
     Indication: PRODUCT USED FOR UNKNOWN INDICATION
     Dosage: 50 MG, QWK
     Route: 058
  2. DEXILANT [Concomitant]
     Dosage: 30 MG, UNK (DR)
  3. RANITIDINE [Concomitant]
     Dosage: 300 MG, UNK
  4. ATENOLOL [Concomitant]
     Dosage: 25 MG, UNK
  5. HYDROCODONE/APAP [Concomitant]
     Dosage: 10-750 MG
  6. SOMA [Concomitant]
     Dosage: 250 MG, UNK
  7. ORENCIA [Concomitant]
     Dosage: 125 MG, UNK
  8. CYMBALTA [Concomitant]
     Dosage: 60 MG, UNK
  9. LIPITOR [Concomitant]
     Dosage: 80 MG, UNK
  10. AMITRIPTYLIN [Concomitant]
     Dosage: 100 MG, UNK
  11. VITAMIN D                          /00107901/ [Concomitant]
     Dosage: 400 UNIT, UNK
  12. COLACE [Concomitant]
     Dosage: 100 MG, UNK
  13. FIBERCON [Concomitant]
     Dosage: 625 MG, UNK

REACTIONS (1)
  - Drug ineffective [Unknown]
